FAERS Safety Report 25505469 (Version 6)
Quarter: 2025Q3

REPORT INFORMATION
  Report Type: Report from Study
  Country: US (occurrence: US)
  Receive Date: 20250702
  Receipt Date: 20250905
  Transmission Date: 20251020
  Serious: Yes (Other)
  Sender: TAIHO ONCOLOGY INC
  Company Number: US-TAIHOP-2024-000409

PATIENT
  Age: 71 Year
  Sex: Female

DRUGS (32)
  1. LONSURF [Suspect]
     Active Substance: TIPIRACIL HYDROCHLORIDE\TRIFLURIDINE
     Indication: Rectal cancer
     Dosage: CYCLE NUMBER 1?CURRENT CYCLE UNKNOWN
     Route: 048
     Dates: start: 20240112
  2. LONSURF [Suspect]
     Active Substance: TIPIRACIL HYDROCHLORIDE\TRIFLURIDINE
     Dosage: CYCLE UNKNOWN
     Route: 048
  3. KEYTRUDA [Suspect]
     Active Substance: PEMBROLIZUMAB
     Indication: Product used for unknown indication
     Dates: start: 20240423
  4. KEYTRUDA [Suspect]
     Active Substance: PEMBROLIZUMAB
     Dates: start: 20240507
  5. KEYTRUDA [Suspect]
     Active Substance: PEMBROLIZUMAB
     Dates: start: 20240528
  6. KEYTRUDA [Suspect]
     Active Substance: PEMBROLIZUMAB
  7. BENADRYL [Concomitant]
     Active Substance: DIPHENHYDRAMINE HYDROCHLORIDE
     Indication: Product used for unknown indication
  8. FUROSEMIDE [Concomitant]
     Active Substance: FUROSEMIDE
     Indication: Product used for unknown indication
  9. HYDROCHLOROTHIAZIDE [Concomitant]
     Active Substance: HYDROCHLOROTHIAZIDE
     Indication: Product used for unknown indication
  10. HYDROMORPHONE [Concomitant]
     Active Substance: HYDROMORPHONE
     Indication: Product used for unknown indication
  11. IBUPROFEN [Concomitant]
     Active Substance: IBUPROFEN
     Indication: Product used for unknown indication
  12. LOSARTAN POTASSIUM [Concomitant]
     Active Substance: LOSARTAN POTASSIUM
     Indication: Product used for unknown indication
  13. MULTIVITAMIN DAILY [Concomitant]
     Indication: Product used for unknown indication
  14. ONDANSETRON [Concomitant]
     Active Substance: ONDANSETRON
     Indication: Product used for unknown indication
     Route: 048
  15. POTASSIUM [Concomitant]
     Active Substance: POTASSIUM
     Indication: Product used for unknown indication
  16. PROCHLORPER [Concomitant]
     Indication: Product used for unknown indication
  17. TRIAMCINOLON [Concomitant]
     Indication: Product used for unknown indication
  18. TRIAMCINOLON [Concomitant]
  19. TYLENOL [Concomitant]
     Active Substance: ACETAMINOPHEN
     Indication: Product used for unknown indication
  20. VITAMIN D2 [Concomitant]
     Active Substance: ERGOCALCIFEROL
     Indication: Product used for unknown indication
  21. VITAMIN D2 [Concomitant]
     Active Substance: ERGOCALCIFEROL
  22. VITAMIN D2 [Concomitant]
     Active Substance: ERGOCALCIFEROL
  23. GUAIFENESIN [Concomitant]
     Active Substance: GUAIFENESIN
     Indication: Product used for unknown indication
  24. KLOR-CON M10 [Concomitant]
     Active Substance: POTASSIUM CHLORIDE
     Indication: Product used for unknown indication
  25. LOMOTIL [Concomitant]
     Active Substance: ATROPINE SULFATE\DIPHENOXYLATE HYDROCHLORIDE
     Indication: Product used for unknown indication
  26. BIOTIN\CALCIUM PANTOTHENATE\CHOLINE BITARTRATE\CYANOCOBALAMIN\FOLIC AC [Concomitant]
     Active Substance: BIOTIN\CALCIUM PANTOTHENATE\CHOLINE BITARTRATE\CYANOCOBALAMIN\FOLIC ACID\INOSITOL\NIACINAMIDE\PYRIDO
     Indication: Product used for unknown indication
  27. ALBUTEROL SULFATE [Concomitant]
     Active Substance: ALBUTEROL SULFATE
     Indication: Product used for unknown indication
  28. AMLODIPINE [Concomitant]
     Active Substance: AMLODIPINE BESYLATE
     Indication: Product used for unknown indication
  29. BEVACIZUMAB [Concomitant]
     Active Substance: BEVACIZUMAB
     Indication: Product used for unknown indication
  30. COLACE [Concomitant]
     Active Substance: DOCUSATE SODIUM
     Indication: Product used for unknown indication
  31. IMODIUM A-D [Concomitant]
     Active Substance: LOPERAMIDE HYDROCHLORIDE
     Indication: Product used for unknown indication
  32. LACTOBACILLUS ACIDOPHILUS [Concomitant]
     Active Substance: LACTOBACILLUS ACIDOPHILUS
     Indication: Product used for unknown indication

REACTIONS (23)
  - Transfusion [Unknown]
  - Vision blurred [Not Recovered/Not Resolved]
  - Red blood cell count decreased [Not Recovered/Not Resolved]
  - Headache [Not Recovered/Not Resolved]
  - Proctalgia [Unknown]
  - Malaise [Unknown]
  - Urinary tract infection [Not Recovered/Not Resolved]
  - Pain [Unknown]
  - Arthralgia [Not Recovered/Not Resolved]
  - Diarrhoea [Not Recovered/Not Resolved]
  - Nausea [Unknown]
  - Inappropriate schedule of product administration [Unknown]
  - Product dose omission in error [Unknown]
  - Brain fog [Unknown]
  - Disease progression [Unknown]
  - Hepatic steatosis [Unknown]
  - Amnesia [Unknown]
  - Product distribution issue [Unknown]
  - Therapy interrupted [Unknown]
  - Alopecia [Not Recovered/Not Resolved]
  - Fatigue [Not Recovered/Not Resolved]
  - Cough [Unknown]
  - Decreased appetite [Unknown]

NARRATIVE: CASE EVENT DATE: 20250501
